FAERS Safety Report 19904122 (Version 1)
Quarter: 2021Q3

REPORT INFORMATION
  Report Type: Spontaneous
  Country: CA (occurrence: CA)
  Receive Date: 20210930
  Receipt Date: 20210930
  Transmission Date: 20211014
  Serious: Yes (Hospitalization)
  Sender: FDA-Public Use
  Company Number: CA-TEVA-2021-CA-1958925

PATIENT
  Sex: Male

DRUGS (3)
  1. CLOZAPINE. [Suspect]
     Active Substance: CLOZAPINE
     Route: 065
  2. CLOZAPINE. [Suspect]
     Active Substance: CLOZAPINE
     Indication: SCHIZOAFFECTIVE DISORDER
     Route: 065
  3. BUPROPION. [Suspect]
     Active Substance: BUPROPION
     Route: 065

REACTIONS (5)
  - Hallucination, auditory [Unknown]
  - Sedation [Unknown]
  - Enuresis [Unknown]
  - Orthostatic hypotension [Unknown]
  - Delusion [Unknown]
